FAERS Safety Report 23033676 (Version 1)
Quarter: 2023Q4

REPORT INFORMATION
  Report Type: Spontaneous
  Country: US (occurrence: US)
  Receive Date: 20231005
  Receipt Date: 20231005
  Transmission Date: 20240109
  Serious: No
  Sender: FDA-Public Use
  Company Number: US-ABBVIE-5436395

PATIENT
  Sex: Female

DRUGS (2)
  1. DEPAKOTE [Suspect]
     Active Substance: DIVALPROEX SODIUM
     Indication: Epilepsy
     Dosage: EXTEND RELEASED
     Route: 048
  2. DEPAKOTE [Suspect]
     Active Substance: DIVALPROEX SODIUM
     Indication: Product used for unknown indication
     Dosage: DELAYED RELEASED
     Route: 065

REACTIONS (5)
  - Incontinence [Unknown]
  - Strabismus [Unknown]
  - Fatigue [Unknown]
  - Oedema [Unknown]
  - Unevaluable event [Unknown]
